FAERS Safety Report 25920226 (Version 1)
Quarter: 2025Q4

REPORT INFORMATION
  Report Type: Spontaneous
  Country: EU (occurrence: EU)
  Receive Date: 20251014
  Receipt Date: 20251014
  Transmission Date: 20260117
  Serious: Yes (Other)
  Sender: GLAXOSMITHKLINE
  Company Number: None

PATIENT
  Age: 24 Year
  Sex: Male
  Weight: 90 kg

DRUGS (3)
  1. ZYBAN [Suspect]
     Active Substance: BUPROPION HYDROCHLORIDE
     Indication: Duplicate therapy error
     Dosage: 4 DF TOTAL(2 TABLETS IN THE MORNING AND 2 TABLETS IN THE EVENING)
  2. FLUOXETINE [Suspect]
     Active Substance: FLUOXETINE HYDROCHLORIDE
     Indication: Duplicate therapy error
     Dosage: 80 MG TOTAL (2 GEL OF 20 MG IN THE MORNING AND 2 GEL OF 20 MG IN THE  EVENING)
  3. MODAFINIL [Suspect]
     Active Substance: MODAFINIL
     Indication: Duplicate therapy error
     Dosage: 400 MG TOTAL(2 TABLETS OF 100 MG IN THE MORNING AND 2 TABLETS OF 100 MG IN THE EVENING)

REACTIONS (5)
  - Hallucination [Recovered/Resolved]
  - Dysarthria [Recovered/Resolved]
  - Nausea [Recovered/Resolved]
  - Tremor [Recovered/Resolved]
  - Medication error [Unknown]

NARRATIVE: CASE EVENT DATE: 20250907
